FAERS Safety Report 9625288 (Version 2)
Quarter: 2013Q4

REPORT INFORMATION
  Report Type: Spontaneous
  Country: US (occurrence: US)
  Receive Date: 20131016
  Receipt Date: 20131129
  Transmission Date: 20140711
  Serious: No
  Sender: FDA-Public Use
  Company Number: US-PFIZER INC-2013293058

PATIENT
  Sex: Female

DRUGS (3)
  1. ADVIL [Suspect]
     Indication: NASOPHARYNGITIS
     Dosage: UNK, AS NEEDED
     Dates: start: 20131009
  2. ADVIL [Suspect]
     Indication: PYREXIA
  3. ADVIL [Suspect]
     Indication: HEADACHE

REACTIONS (1)
  - Drug ineffective [Unknown]
